FAERS Safety Report 15878653 (Version 5)
Quarter: 2019Q4

REPORT INFORMATION
  Report Type: Spontaneous
  Country: US (occurrence: US)
  Receive Date: 20190128
  Receipt Date: 20191211
  Transmission Date: 20200122
  Serious: Yes (Hospitalization, Other)
  Sender: FDA-Public Use
  Company Number: US-PFIZER INC-2019038081

PATIENT
  Age: 55 Year
  Sex: Female

DRUGS (3)
  1. IBRANCE [Suspect]
     Active Substance: PALBOCICLIB
     Dosage: 125 MG, UNK
  2. IBRANCE [Suspect]
     Active Substance: PALBOCICLIB
     Dosage: 100 MG, CYCLIC (ONCE A DAY FOR 21 DAYS, OFF 7)
     Route: 048
     Dates: start: 201810
  3. IBRANCE [Suspect]
     Active Substance: PALBOCICLIB
     Indication: BONE CANCER
     Dosage: UNK, CYCLIC

REACTIONS (14)
  - Spinal fracture [Unknown]
  - Alopecia [Unknown]
  - Intervertebral disc protrusion [Unknown]
  - Pain [Unknown]
  - White blood cell count decreased [Unknown]
  - Insomnia [Unknown]
  - Product use in unapproved indication [Unknown]
  - Stress [Unknown]
  - Fall [Unknown]
  - Road traffic accident [Unknown]
  - Off label use [Unknown]
  - Injury [Unknown]
  - Tendonitis [Unknown]
  - Neoplasm progression [Unknown]

NARRATIVE: CASE EVENT DATE: 20190706
